FAERS Safety Report 7292362-5 (Version None)
Quarter: 2011Q1

REPORT INFORMATION
  Report Type: 
  Country: None (occurrence: None)
  Receive Date: 20110215
  Receipt Date: 20101221
  Transmission Date: 20110831
  Serious: Yes (Other)
  Sender: FDA-Public Use
  Company Number: US-BAYER-201029952NA

PATIENT
  Sex: Female

DRUGS (8)
  1. OXYCODONE [Concomitant]
  2. METFORMIN [Concomitant]
     Dosage: UNK
     Dates: start: 20070101
  3. PROZAC [Concomitant]
  4. WARFARIN [Concomitant]
  5. OXYCONTIN [Concomitant]
  6. HERBAL PREPARATION [Concomitant]
  7. YAZ [Suspect]
     Indication: MENSTRUAL CYCLE MANAGEMENT
     Route: 048
     Dates: start: 20090501, end: 20090701
  8. FLUOXETINE [Concomitant]
     Dosage: UNK
     Dates: start: 20060101

REACTIONS (5)
  - DYSPNOEA [None]
  - DEEP VEIN THROMBOSIS [None]
  - PAIN IN EXTREMITY [None]
  - PULMONARY EMBOLISM [None]
  - OEDEMA PERIPHERAL [None]
